FAERS Safety Report 8259971-8 (Version None)
Quarter: 2012Q2

REPORT INFORMATION
  Report Type: 
  Country: None (occurrence: None)
  Receive Date: 20120404
  Receipt Date: 20120326
  Transmission Date: 20120825
  Serious: Yes (Hospitalization)
  Sender: FDA-Public Use
  Company Number: US-MPIJNJ-2012-02186

PATIENT
  Sex: Female
  Weight: 85 kg

DRUGS (1)
  1. VELCADE [Suspect]
     Indication: MULTIPLE MYELOMA
     Dosage: 2.7 MG, CYCLIC
     Route: 042
     Dates: start: 20111108

REACTIONS (2)
  - DIARRHOEA [None]
  - CLOSTRIDIUM TEST POSITIVE [None]
